FAERS Safety Report 21595347 (Version 4)
Quarter: 2022Q4

REPORT INFORMATION
  Report Type: Report from Study
  Country: GB (occurrence: GB)
  Receive Date: 20221115
  Receipt Date: 20221202
  Transmission Date: 20230112
  Serious: Yes (Death, Hospitalization, Other)
  Sender: FDA-Public Use
  Company Number: GB-ROCHE-3208478

PATIENT
  Age: 67 Year
  Sex: Female

DRUGS (30)
  1. ADALIMUMAB [Suspect]
     Active Substance: ADALIMUMAB
     Indication: Product used for unknown indication
     Route: 058
     Dates: start: 20151124
  2. OMEPRAZOLE [Concomitant]
     Active Substance: OMEPRAZOLE
     Indication: Product used for unknown indication
     Route: 048
     Dates: start: 20170530
  3. TAMOXIFEN [Suspect]
     Active Substance: TAMOXIFEN
     Indication: Breast cancer metastatic
     Dosage: 12/JUL/2016
     Route: 048
     Dates: start: 20160712, end: 20160802
  4. TAMOXIFEN [Suspect]
     Active Substance: TAMOXIFEN
     Indication: Breast cancer metastatic
     Route: 065
  5. ENOXAPARIN [Concomitant]
     Active Substance: ENOXAPARIN
     Indication: Embolism venous
     Route: 058
     Dates: start: 20160104, end: 20160106
  6. EPIRUBICIN [Suspect]
     Active Substance: EPIRUBICIN
     Indication: Triple negative breast cancer
     Route: 065
  7. ERIBULIN MESYLATE [Suspect]
     Active Substance: ERIBULIN MESYLATE
     Indication: Triple negative breast cancer
     Route: 065
  8. HYALURONIDASE (HUMAN RECOMBINANT) [Suspect]
     Active Substance: HYALURONIDASE (HUMAN RECOMBINANT)
     Indication: HER2 positive breast cancer
     Route: 050
     Dates: start: 20151124, end: 20151221
  9. HYALURONIDASE (HUMAN RECOMBINANT) [Suspect]
     Active Substance: HYALURONIDASE (HUMAN RECOMBINANT)
     Indication: HER2 positive breast cancer
     Route: 050
     Dates: start: 20160531, end: 20161115
  10. EXEMESTANE [Suspect]
     Active Substance: EXEMESTANE
     Indication: Product used for unknown indication
     Route: 048
     Dates: end: 20160712
  11. EXEMESTANE [Suspect]
     Active Substance: EXEMESTANE
     Indication: Product used for unknown indication
     Dosage: 31/MAY/2016
     Route: 065
     Dates: start: 20160531, end: 20160610
  12. PACLITAXEL [Suspect]
     Active Substance: PACLITAXEL
     Indication: Breast cancer metastatic
     Dosage: 22/NOV/2016
     Route: 042
     Dates: start: 20161122
  13. PACLITAXEL [Suspect]
     Active Substance: PACLITAXEL
     Indication: Breast cancer metastatic
     Route: 065
     Dates: start: 20151124, end: 20151221
  14. CAPECITABINE [Suspect]
     Active Substance: CAPECITABINE
     Indication: Triple negative breast cancer
     Dosage: 22/NOV/2016
     Route: 048
     Dates: start: 20161122, end: 20161213
  15. CAPECITABINE [Suspect]
     Active Substance: CAPECITABINE
     Indication: Triple negative breast cancer
     Dosage: 22/NOV/2016
     Route: 048
     Dates: end: 20161213
  16. CAPECITABINE [Suspect]
     Active Substance: CAPECITABINE
     Indication: Triple negative breast cancer
     Dosage: 13/DEC/2016
     Route: 048
     Dates: start: 20161213, end: 20161216
  17. TRASTUZUMAB [Suspect]
     Active Substance: TRASTUZUMAB
     Indication: Breast cancer metastatic
     Dosage: 31/MAY/2016
     Route: 058
     Dates: start: 20160531, end: 20161115
  18. TRASTUZUMAB [Suspect]
     Active Substance: TRASTUZUMAB
     Indication: Breast cancer metastatic
     Route: 058
     Dates: end: 20151221
  19. PEGVORHYALURONIDASE ALFA [Suspect]
     Active Substance: PEGVORHYALURONIDASE ALFA
     Indication: HER2 positive breast cancer
     Dosage: 31/MAY/2016
     Route: 065
  20. PEGVORHYALURONIDASE ALFA [Suspect]
     Active Substance: PEGVORHYALURONIDASE ALFA
     Indication: HER2 positive breast cancer
     Dosage: 24/NOV/2015
     Route: 065
  21. CALCIUM CARBONATE\CHOLECALCIFEROL [Concomitant]
     Active Substance: CALCIUM CARBONATE\CHOLECALCIFEROL
     Indication: Product used for unknown indication
     Route: 048
     Dates: start: 20101221, end: 201511
  22. CYCLOPHOSPHAMIDE [Suspect]
     Active Substance: CYCLOPHOSPHAMIDE
     Indication: Triple negative breast cancer
     Route: 065
  23. GEMCITABINE [Suspect]
     Active Substance: GEMCITABINE
     Indication: Triple negative breast cancer
     Route: 065
  24. DOXORUBICIN [Suspect]
     Active Substance: DOXORUBICIN
     Indication: Triple negative breast cancer
     Route: 065
  25. CALCIUM CARBONATE\CHOLECALCIFEROL [Concomitant]
     Active Substance: CALCIUM CARBONATE\CHOLECALCIFEROL
     Indication: Product used for unknown indication
     Route: 048
     Dates: start: 20101221, end: 201511
  26. HYALURONIDASE [Suspect]
     Active Substance: HYALURONIDASE
     Indication: HER2 positive breast cancer
     Route: 058
     Dates: end: 20151221
  27. HYALURONIDASE [Suspect]
     Active Substance: HYALURONIDASE
     Indication: HER2 positive breast cancer
     Dosage: 31/MAY/2016
     Route: 058
  28. HYALURONIDASE [Suspect]
     Active Substance: HYALURONIDASE
     Indication: HER2 positive breast cancer
     Dosage: 31/MAY/2016
     Route: 058
     Dates: end: 20161105
  29. CARBOPLATIN [Suspect]
     Active Substance: CARBOPLATIN
     Indication: Triple negative breast cancer
     Route: 065
  30. FLUOROURACIL [Suspect]
     Active Substance: FLUOROURACIL
     Indication: Triple negative breast cancer
     Route: 065

REACTIONS (60)
  - Haemoglobin decreased [Fatal]
  - Blood phosphorus increased [Fatal]
  - Musculoskeletal stiffness [Fatal]
  - Nausea [Fatal]
  - Fatigue [Fatal]
  - C-reactive protein increased [Fatal]
  - Tremor [Fatal]
  - Urinary tract infection [Fatal]
  - Crying [Fatal]
  - Multiple-drug resistance [Fatal]
  - Blood alkaline phosphatase increased [Fatal]
  - Ill-defined disorder [Fatal]
  - Hypertension [Fatal]
  - Fatigue [Fatal]
  - Cerebral haemorrhage [Fatal]
  - Muscle twitching [Fatal]
  - Pyrexia [Fatal]
  - Blood bilirubin increased [Fatal]
  - Rectal haemorrhage [Fatal]
  - Blood alkaline phosphatase increased [Fatal]
  - Blood glucose increased [Fatal]
  - Alanine aminotransferase increased [Fatal]
  - Sinusitis [Fatal]
  - Sensory disturbance [Fatal]
  - Back pain [Fatal]
  - Blood urea increased [Fatal]
  - Sensory loss [Fatal]
  - Asthenia [Fatal]
  - Depressed mood [Fatal]
  - Constipation [Fatal]
  - Ascites [Fatal]
  - Hypoalbuminaemia [Fatal]
  - Protein total decreased [Fatal]
  - Aspartate aminotransferase increased [Fatal]
  - Colitis ulcerative [Fatal]
  - Irritability [Fatal]
  - Pain [Fatal]
  - Neck pain [Fatal]
  - Insomnia [Fatal]
  - Lymphopenia [Fatal]
  - Blood creatinine increased [Fatal]
  - Vomiting [Fatal]
  - Agitation [Fatal]
  - Headache [Fatal]
  - Dyspnoea [Fatal]
  - Product administered at inappropriate site [Fatal]
  - Crohn^s disease [Fatal]
  - Neutrophil count increased [Fatal]
  - Balance disorder [Fatal]
  - Diarrhoea [Fatal]
  - Hypernatraemia [Fatal]
  - White blood cell count increased [Fatal]
  - Hypertension [Fatal]
  - Malaise [Fatal]
  - Hypokalaemia [Fatal]
  - Abdominal pain upper [Fatal]
  - Asthenia [Fatal]
  - Death [Fatal]
  - Death [Fatal]
  - Injection site pain [Fatal]

NARRATIVE: CASE EVENT DATE: 20151124
